FAERS Safety Report 5797055-9 (Version None)
Quarter: 2008Q3

REPORT INFORMATION
  Report Type: 
  Country: None (occurrence: None)
  Receive Date: 20080701
  Receipt Date: 20080630
  Transmission Date: 20090109
  Serious: Yes (Hospitalization)
  Sender: FDA-Public Use
  Company Number: AU-ASTRAZENECA-2008AP05035

PATIENT
  Age: 30988 Day
  Sex: Female
  Weight: 59 kg

DRUGS (5)
  1. NEXIUM [Suspect]
     Route: 048
     Dates: start: 20060318, end: 20060323
  2. CLOPIDOGREL [Suspect]
     Route: 048
     Dates: start: 20060318, end: 20060323
  3. IMIPRAMINE HYDROCHLORIDE [Suspect]
     Dates: start: 20060318, end: 20060323
  4. ACETAMINOPHEN [Suspect]
     Route: 048
     Dates: start: 20060318, end: 20060323
  5. ZOLPIDEM TARTRATE [Suspect]
     Indication: SLEEP DISORDER
     Route: 048
     Dates: start: 20060318, end: 20060322

REACTIONS (3)
  - ARRHYTHMIA [None]
  - DISORIENTATION [None]
  - EMOTIONAL DISTRESS [None]
